FAERS Safety Report 13898766 (Version 1)
Quarter: 2017Q3

REPORT INFORMATION
  Report Type: Report from Study
  Country: US (occurrence: US)
  Receive Date: 20170823
  Receipt Date: 20170823
  Transmission Date: 20171127
  Serious: Yes (Hospitalization)
  Sender: FDA-Public Use
  Company Number: US-ACTELION-A-US2017-158267

PATIENT
  Age: 18 Year
  Sex: Male

DRUGS (6)
  1. XOPENEX [Concomitant]
     Active Substance: LEVALBUTEROL HYDROCHLORIDE
     Dosage: 1 DOSE INH PRN
     Route: 055
     Dates: start: 20160406
  2. ONFI [Concomitant]
     Active Substance: CLOBAZAM
     Dosage: 1 DOSE, TID
     Route: 048
     Dates: start: 20150424
  3. MULTIVITAMIN [Concomitant]
     Active Substance: VITAMINS
     Dosage: 1 TABLET, QAM
     Route: 048
     Dates: start: 20150424
  4. ZAVESCA [Suspect]
     Active Substance: MIGLUSTAT
     Indication: GAUCHER^S DISEASE
     Dosage: 200 MG, TID
     Route: 048
     Dates: start: 20140401
  5. BUDESONIDE. [Concomitant]
     Active Substance: BUDESONIDE
     Dosage: 1 DOSE VIA NEBULIZER
     Route: 055
     Dates: start: 20160406
  6. VIMPAT [Concomitant]
     Active Substance: LACOSAMIDE
     Dosage: 1 DOSE, TID
     Route: 048
     Dates: start: 20150424

REACTIONS (1)
  - Back disorder [Unknown]
